FAERS Safety Report 4922419-2 (Version None)
Quarter: 2006Q1

REPORT INFORMATION
  Report Type: 
  Country: None (occurrence: None)
  Receive Date: 20060224
  Receipt Date: 20060202
  Transmission Date: 20060701
  Serious: Yes (Hospitalization, Disabling)
  Sender: FDA-Public Use
  Company Number: US-MERCK-0602USA01611

PATIENT
  Age: 52 Year
  Sex: Male
  Weight: 148 kg

DRUGS (23)
  1. ECOTRIN [Concomitant]
     Route: 048
  2. GLUCOPHAGE [Concomitant]
     Route: 048
  3. LENTE INSULIN [Concomitant]
     Route: 065
  4. LASIX [Concomitant]
     Route: 048
  5. LEXAPRO [Concomitant]
     Route: 048
  6. MINITRAN [Concomitant]
     Route: 048
  7. PLAVIX [Concomitant]
     Route: 048
  8. PRAVACHOL [Concomitant]
     Route: 048
  9. PREVACID [Concomitant]
     Route: 048
  10. ZAROXOLYN [Concomitant]
     Route: 065
  11. VIOXX [Suspect]
     Indication: ARTHRITIS
     Route: 048
     Dates: start: 19990101, end: 20040901
  12. ACETAMINOPHEN AND PROPOXYPHENE NAPSYLATE [Concomitant]
     Route: 065
  13. ZITHROMAX [Concomitant]
     Route: 065
  14. NORVASC [Concomitant]
     Route: 065
  15. ACCUPRIL [Concomitant]
     Route: 065
  16. LANOXIN [Concomitant]
     Route: 065
  17. ALDACTONE [Concomitant]
     Route: 048
  18. CARBATROL [Concomitant]
     Route: 048
  19. VITAMINS (UNSPECIFIED) [Concomitant]
     Route: 065
  20. CARVEDILOL [Concomitant]
     Route: 048
  21. CELEBREX [Concomitant]
     Route: 048
  22. COMBIVENT [Concomitant]
     Route: 065
  23. DIGOXIN [Concomitant]
     Route: 048

REACTIONS (8)
  - ANXIETY [None]
  - CARDIAC DISORDER [None]
  - CHEST PAIN [None]
  - DEPRESSION [None]
  - FATIGUE [None]
  - MEMORY IMPAIRMENT [None]
  - MYOCARDIAL INFARCTION [None]
  - STRESS [None]
